FAERS Safety Report 5801413-3 (Version None)
Quarter: 2008Q2

REPORT INFORMATION
  Report Type: 
  Country: None (occurrence: None)
  Receive Date: 20080626
  Receipt Date: 20070803
  Transmission Date: 20081010
  Serious: Yes (Other)
  Sender: FDA-Public Use
  Company Number: 510129

PATIENT
  Age: 66 Year
  Sex: Male
  Weight: 84.8 kg

DRUGS (1)
  1. XELODA [Suspect]
     Indication: BILE DUCT CANCER
     Dosage: 3500 MG DAILY

REACTIONS (1)
  - DIARRHOEA [None]
